FAERS Safety Report 7080057-2 (Version None)
Quarter: 2010Q4

REPORT INFORMATION
  Report Type: 
  Country: None (occurrence: None)
  Receive Date: 20101102
  Receipt Date: 20101005
  Transmission Date: 20110411
  Serious: No
  Sender: FDA-Public Use
  Company Number: US-ABBOTT-10P-163-0676676-00

PATIENT
  Sex: Female
  Weight: 74.91 kg

DRUGS (1)
  1. BIAXIN [Suspect]
     Indication: INFECTION
     Route: 048
     Dates: start: 20050101, end: 20050101

REACTIONS (3)
  - DYSPNOEA [None]
  - ERYTHEMA [None]
  - OEDEMA [None]
